FAERS Safety Report 25617749 (Version 1)
Quarter: 2025Q3

REPORT INFORMATION
  Report Type: Spontaneous
  Country: SG (occurrence: SG)
  Receive Date: 20250729
  Receipt Date: 20250729
  Transmission Date: 20251020
  Serious: Yes (Life-Threatening)
  Sender: DR REDDYS
  Company Number: None

PATIENT
  Age: 52 Year
  Sex: Male

DRUGS (3)
  1. ATORVASTATIN [Suspect]
     Active Substance: ATORVASTATIN
     Indication: Coronary artery disease
     Dosage: REDUCED TO 10 MG Q.P.M.
  2. TICAGRELOR [Suspect]
     Active Substance: TICAGRELOR
     Indication: Antiplatelet therapy
  3. EZETIMIBE [Concomitant]
     Active Substance: EZETIMIBE
     Indication: Coronary artery disease

REACTIONS (4)
  - Myopathy [Unknown]
  - Drug level increased [Unknown]
  - Drug-genetic interaction [Unknown]
  - Drug interaction [Unknown]
